FAERS Safety Report 19427302 (Version 3)
Quarter: 2021Q3

REPORT INFORMATION
  Report Type: Report from Study
  Country: FR (occurrence: FR)
  Receive Date: 20210617
  Receipt Date: 20210820
  Transmission Date: 20211014
  Serious: Yes (Hospitalization)
  Sender: FDA-Public Use
  Company Number: FR-ROCHE-2847776

PATIENT
  Age: 56 Year
  Sex: Female

DRUGS (13)
  1. DIFFU K [Concomitant]
     Active Substance: POTASSIUM CHLORIDE
     Indication: HYPOKALAEMIA
     Route: 048
     Dates: start: 20201221
  2. LYRICA [Concomitant]
     Active Substance: PREGABALIN
     Indication: BACK PAIN
     Route: 048
     Dates: start: 20201015
  3. OXYNORMORO [Concomitant]
     Active Substance: OXYCODONE HYDROCHLORIDE
     Indication: BACK PAIN
     Route: 048
     Dates: start: 20200928
  4. PROPRANOLOL [Concomitant]
     Active Substance: PROPRANOLOL HYDROCHLORIDE
     Indication: HYPERTHYROIDISM
     Route: 048
     Dates: start: 20201214
  5. ATEZOLIZUMAB. [Suspect]
     Active Substance: ATEZOLIZUMAB
     Indication: METASTATIC NEOPLASM
     Dosage: LAST CYCLE OF TREATMENT (C15) WAS RECEIVED AS FOLLOW: ATEZOLIZUMAB IV 1200 MG ON 17?MAY?2021 FOR A C
     Route: 042
     Dates: start: 20200727
  6. NAPROSYNE [Concomitant]
     Active Substance: NAPROXEN
     Route: 048
     Dates: start: 20200903
  7. PARACETAMOL [Concomitant]
     Active Substance: ACETAMINOPHEN
     Indication: BACK PAIN
     Route: 048
     Dates: start: 20200810
  8. DAFALGAN CODEINE [Concomitant]
     Active Substance: ACETAMINOPHEN\CODEINE PHOSPHATE
     Indication: BACK PAIN
     Route: 048
     Dates: start: 20201015
  9. XANAX [Concomitant]
     Active Substance: ALPRAZOLAM
     Indication: ANXIETY
     Route: 048
     Dates: start: 20190101
  10. ESIDREX [Concomitant]
     Active Substance: HYDROCHLOROTHIAZIDE
     Indication: HYPERTENSION
     Dosage: 1/2 TAB TWICE A DAY
     Route: 048
     Dates: start: 2017
  11. MOVICOL [Concomitant]
     Active Substance: POLYETHYLENE GLYCOL 3350\POTASSIUM CHLORIDE\SODIUM BICARBONATE\SODIUM CHLORIDE
     Indication: CONSTIPATION
     Route: 048
     Dates: start: 20201019
  12. LANZOR [Concomitant]
     Active Substance: LANSOPRAZOLE
     Indication: GASTROOESOPHAGEAL REFLUX DISEASE
     Route: 048
     Dates: start: 2017
  13. ACUPAN [Concomitant]
     Active Substance: NEFOPAM HYDROCHLORIDE
     Route: 048
     Dates: start: 20200907

REACTIONS (1)
  - Pleural effusion [Recovered/Resolved]

NARRATIVE: CASE EVENT DATE: 20210607
